FAERS Safety Report 20475347 (Version 1)
Quarter: 2022Q1

REPORT INFORMATION
  Report Type: Spontaneous
  Country: CZ (occurrence: CZ)
  Receive Date: 20220215
  Receipt Date: 20220215
  Transmission Date: 20220423
  Serious: Yes (Other)
  Sender: FDA-Public Use
  Company Number: CZ-STADA-241505

PATIENT
  Age: 11 Year
  Sex: Female

DRUGS (7)
  1. CELECOXIB [Suspect]
     Active Substance: CELECOXIB
     Indication: Oligoastrocytoma
     Dosage: COMBAT
     Route: 065
  2. TEMOZOLOMIDE [Suspect]
     Active Substance: TEMOZOLOMIDE
     Indication: Oligoastrocytoma
     Dosage: 30 MG/M2, 1X/DAY
     Route: 065
  3. ETOPOSIDE [Suspect]
     Active Substance: ETOPOSIDE
     Indication: Oligoastrocytoma
     Dosage: 25 MG/M2, 1X/DAY
     Route: 065
  4. TRETINOIN [Suspect]
     Active Substance: TRETINOIN
     Indication: Oligoastrocytoma
     Dosage: COMBAT
     Route: 065
  5. CHOLECALCIFEROL [Suspect]
     Active Substance: CHOLECALCIFEROL
     Indication: Oligoastrocytoma
     Route: 065
  6. FENOFIBRATE [Suspect]
     Active Substance: FENOFIBRATE
     Indication: Oligoastrocytoma
     Route: 065
  7. BEVACIZUMAB [Suspect]
     Active Substance: BEVACIZUMAB
     Indication: Oligoastrocytoma
     Route: 065

REACTIONS (2)
  - Myelosuppression [Unknown]
  - Off label use [Unknown]
